FAERS Safety Report 23981712 (Version 1)
Quarter: 2024Q2

REPORT INFORMATION
  Report Type: Spontaneous
  Country: AU (occurrence: AU)
  Receive Date: 20240617
  Receipt Date: 20240617
  Transmission Date: 20240716
  Serious: Yes (Hospitalization)
  Sender: FDA-Public Use
  Company Number: AU-MYLANLABS-2024M1054403

PATIENT
  Age: 47 Year
  Sex: Male

DRUGS (4)
  1. DEXAMETHASONE [Suspect]
     Active Substance: DEXAMETHASONE
     Indication: Myelitis transverse
     Dosage: 8 MILLIGRAM, BID
     Route: 065
  2. DEXAMETHASONE [Suspect]
     Active Substance: DEXAMETHASONE
     Dosage: GRADUAL TAPER OVER 5 WEEKS
     Route: 065
  3. IPILIMUMAB;NIVOLUMAB [Concomitant]
     Indication: Malignant melanoma stage IV
     Dosage: 480 MILLIGRAM, Q28D, RECEIVED 2CYCLES
     Route: 042
  4. Immunoglobulin [Concomitant]
     Indication: Myelitis transverse
     Dosage: 2 G/KG OVER 5 DAYS
     Route: 042

REACTIONS (1)
  - Drug ineffective [Unknown]
